FAERS Safety Report 6970994-9 (Version None)
Quarter: 2010Q3

REPORT INFORMATION
  Report Type: 
  Country: None (occurrence: None)
  Receive Date: 20100908
  Receipt Date: 20100830
  Transmission Date: 20110219
  Serious: Yes (Other)
  Sender: FDA-Public Use
  Company Number: US-JNJFOC-20100608553

PATIENT
  Sex: Female
  Weight: 72.58 kg

DRUGS (16)
  1. REMICADE [Suspect]
     Indication: CROHN'S DISEASE
     Route: 042
  2. REMICADE [Suspect]
     Route: 042
  3. REMICADE [Suspect]
     Route: 042
  4. ASPIRIN [Concomitant]
  5. FAMOTIDINE [Concomitant]
  6. PRAVASTATIN [Concomitant]
  7. HYDROCHLOROTHIAZIDE [Concomitant]
  8. LEVOTHYROXINE [Concomitant]
  9. CARAFATE [Concomitant]
  10. PLAVIX [Concomitant]
  11. CITALOPRAM HYDROBROMIDE [Concomitant]
  12. TUMS [Concomitant]
  13. MAGNESIUM OXIDE [Concomitant]
  14. CALCITRIOL [Concomitant]
  15. OPIUM TINCTURE [Concomitant]
  16. DESOWEN [Concomitant]

REACTIONS (3)
  - GALLBLADDER DISORDER [None]
  - INJECTION SITE CELLULITIS [None]
  - SINUSITIS [None]
